FAERS Safety Report 6961158-3 (Version None)
Quarter: 2010Q3

REPORT INFORMATION
  Report Type: 
  Country: None (occurrence: None)
  Receive Date: 20100901
  Receipt Date: 20100823
  Transmission Date: 20110219
  Serious: Yes (Other)
  Sender: FDA-Public Use
  Company Number: US-CELGENEUS-163-21880-10080117

PATIENT
  Sex: Male

DRUGS (3)
  1. REVLIMID [Suspect]
     Indication: MULTIPLE MYELOMA
     Route: 048
     Dates: start: 20100630
  2. MACRODANTIN [Concomitant]
     Indication: PRODUCT USED FOR UNKNOWN INDICATION
     Route: 065
     Dates: start: 20100804, end: 20100813
  3. MACRODANTIN [Concomitant]
     Route: 065
     Dates: start: 20100817

REACTIONS (3)
  - HAEMOPTYSIS [None]
  - KIDNEY INFECTION [None]
  - NEPHROLITHIASIS [None]
